FAERS Safety Report 8571513-6 (Version None)
Quarter: 2012Q3

REPORT INFORMATION
  Report Type: 
  Country: None (occurrence: None)
  Receive Date: 20120806
  Receipt Date: 20120726
  Transmission Date: 20120928
  Serious: Yes (Other)
  Sender: FDA-Public Use
  Company Number: JP-JNJFOC-20120714667

PATIENT

DRUGS (2)
  1. OXYCODONE HCL [Suspect]
     Indication: CANCER PAIN
     Dosage: 160 MG ONCE A DAY
     Route: 065
     Dates: start: 20120720, end: 20120724
  2. FENTANYL-100 [Suspect]
     Indication: CANCER PAIN
     Route: 062
     Dates: start: 20120725

REACTIONS (4)
  - HAEMATOCHEZIA [None]
  - DIARRHOEA [None]
  - PYREXIA [None]
  - MUCOUS STOOLS [None]
